FAERS Safety Report 8355203-0 (Version None)
Quarter: 2012Q2

REPORT INFORMATION
  Report Type: 
  Country: None (occurrence: None)
  Receive Date: 20120511
  Receipt Date: 20120508
  Transmission Date: 20120825
  Serious: Yes (Death)
  Sender: FDA-Public Use
  Company Number: CA-ABBOTT-12P-028-0915839-00

PATIENT
  Sex: Male

DRUGS (9)
  1. WELLBUTRIN [Concomitant]
     Indication: PRODUCT USED FOR UNKNOWN INDICATION
  2. PROZAC [Interacting]
     Indication: BIPOLAR DISORDER
  3. BIAXIN [Interacting]
     Indication: SINUSITIS
  4. DEXTROMETHORPHAN [Interacting]
     Indication: PRODUCT USED FOR UNKNOWN INDICATION
  5. BIAXIN [Interacting]
     Indication: BRONCHITIS
     Dates: start: 20110401
  6. PRIVATUX [Suspect]
     Indication: PRODUCT USED FOR UNKNOWN INDICATION
  7. RESTORIL [Concomitant]
     Indication: PRODUCT USED FOR UNKNOWN INDICATION
  8. NYQUIL [Suspect]
     Indication: PRODUCT USED FOR UNKNOWN INDICATION
  9. ZYPREXA [Concomitant]
     Indication: PRODUCT USED FOR UNKNOWN INDICATION

REACTIONS (5)
  - ACCIDENTAL POISONING [None]
  - CARDIAC FAILURE [None]
  - SEROTONIN SYNDROME [None]
  - DRUG INTERACTION [None]
  - ACUTE PULMONARY OEDEMA [None]
